FAERS Safety Report 4819645-X (Version None)
Quarter: 2005Q4

REPORT INFORMATION
  Report Type: 
  Country: None (occurrence: None)
  Receive Date: 20051102
  Receipt Date: 20051025
  Transmission Date: 20060501
  Serious: Yes (Hospitalization)
  Sender: FDA-Public Use
  Company Number: 05-NIP00107

PATIENT
  Age: 64 Year
  Sex: Male
  Weight: 90.4926 kg

DRUGS (11)
  1. NIPENT [Suspect]
     Indication: CHRONIC LYMPHOCYTIC LEUKAEMIA
     Dosage: 0.0952 MG (2 MG, Q21), INTRAVENOUS
     Route: 042
     Dates: start: 20050627, end: 20051017
  2. RITUXIMAB [Suspect]
     Indication: CHRONIC LYMPHOCYTIC LEUKAEMIA
     Dosage: 17.8571 MG (375 MG, Q21) INTRAVENOUS
     Route: 042
     Dates: start: 20050627, end: 20051017
  3. CYCLOPHOSPHAMIDE [Suspect]
     Indication: CHRONIC LYMPHOCYTIC LEUKAEMIA
     Dosage: 28.5714 MG (600 MG, Q21D), INTRAVENOUS
     Route: 042
     Dates: start: 20050627, end: 20051017
  4. COZAAR [Concomitant]
  5. RABEPRAZOLE SODIUM [Concomitant]
  6. CALCIUM CARBONATE [Concomitant]
  7. ERGOCALCIFEROL [Concomitant]
  8. VERAPAMIL [Concomitant]
  9. URSODIOL [Concomitant]
  10. ACYCLOVIR [Concomitant]
  11. INDOMETHACIN [Concomitant]

REACTIONS (9)
  - ABDOMINAL PAIN [None]
  - BLOOD PRESSURE DECREASED [None]
  - CHILLS [None]
  - DEHYDRATION [None]
  - DIARRHOEA [None]
  - HEART RATE INCREASED [None]
  - PYREXIA [None]
  - RENAL FAILURE [None]
  - SEPSIS [None]
